FAERS Safety Report 16580164 (Version 2)
Quarter: 2019Q3

REPORT INFORMATION
  Report Type: Spontaneous
  Country: AU (occurrence: AU)
  Receive Date: 20190716
  Receipt Date: 20190716
  Transmission Date: 20191004
  Serious: Yes (Hospitalization, Other)
  Sender: FDA-Public Use
  Company Number: AU-ABBVIE-19K-008-2838930-00

PATIENT
  Age: 27 Year
  Sex: Female

DRUGS (4)
  1. INFLIXIMAB [Suspect]
     Active Substance: INFLIXIMAB
     Indication: COLITIS ULCERATIVE
     Route: 042
  2. 5-ASA [Suspect]
     Active Substance: MESALAMINE
     Indication: COLITIS ULCERATIVE
     Route: 048
  3. METHOTREXATE. [Suspect]
     Active Substance: METHOTREXATE
     Indication: COLITIS ULCERATIVE
     Route: 048
  4. HUMIRA [Suspect]
     Active Substance: ADALIMUMAB
     Indication: COLITIS ULCERATIVE
     Route: 058

REACTIONS (9)
  - Pleural effusion [Unknown]
  - Eosinophilic pneumonia chronic [Recovering/Resolving]
  - Therapy non-responder [Unknown]
  - Leukocytosis [Unknown]
  - Pyrexia [Unknown]
  - Cough [Unknown]
  - Eosinophil count increased [Unknown]
  - Product use in unapproved indication [Unknown]
  - Dyspnoea [Unknown]
